FAERS Safety Report 8181018-2 (Version None)
Quarter: 2012Q1

REPORT INFORMATION
  Report Type: 
  Country: None (occurrence: None)
  Receive Date: 20120301
  Receipt Date: 20120301
  Transmission Date: 20120608
  Serious: Yes (Other)
  Sender: FDA-Public Use
  Company Number: None

PATIENT
  Age: 53 Year
  Sex: Female
  Weight: 56.6996 kg

DRUGS (2)
  1. GEODON [Suspect]
     Indication: BIPOLAR DISORDER
     Dosage: 40MG QHS P.O.
     Route: 048
     Dates: start: 20111208
  2. GEODON [Suspect]
     Indication: BIPOLAR DISORDER
     Dosage: 80MG QHS PO
     Route: 048
     Dates: start: 20111209, end: 20111213

REACTIONS (2)
  - TONGUE ULCERATION [None]
  - IMPAIRED HEALING [None]
